FAERS Safety Report 4746841-2 (Version None)
Quarter: 2005Q3

REPORT INFORMATION
  Report Type: 
  Country: None (occurrence: None)
  Receive Date: 20050817
  Receipt Date: 20050810
  Transmission Date: 20060218
  Serious: Yes (Other)
  Sender: FDA-Public Use
  Company Number: PHEH2005US08890

PATIENT
  Sex: Female

DRUGS (1)
  1. AREDIA [Suspect]

REACTIONS (4)
  - BONE DEBRIDEMENT [None]
  - BONE FRAGMENTATION [None]
  - TOOTH ABSCESS [None]
  - TOOTH EXTRACTION [None]
